FAERS Safety Report 17375820 (Version 5)
Quarter: 2022Q3

REPORT INFORMATION
  Report Type: Report from Study
  Country: US (occurrence: US)
  Receive Date: 20200206
  Receipt Date: 20220701
  Transmission Date: 20221027
  Serious: Yes (Hospitalization, Other)
  Sender: FDA-Public Use
  Company Number: NVSC2020US029773

PATIENT
  Age: 55 Year
  Sex: Female

DRUGS (4)
  1. PROMACTA [Suspect]
     Active Substance: ELTROMBOPAG OLAMINE
     Indication: Thrombocytopenia
     Dosage: 50 MG, QD
     Route: 048
     Dates: start: 20201104
  2. PROMACTA [Suspect]
     Active Substance: ELTROMBOPAG OLAMINE
     Indication: Immune thrombocytopenia
     Dosage: 50 MG, QD
     Route: 048
     Dates: start: 202204
  3. AMLODIPINE [Concomitant]
     Active Substance: AMLODIPINE BESYLATE
     Indication: Product used for unknown indication
     Dosage: UNK
     Route: 065
  4. QUETIAPINE [Concomitant]
     Active Substance: QUETIAPINE
     Indication: Product used for unknown indication
     Dosage: UNK
     Route: 065

REACTIONS (9)
  - Diarrhoea [Unknown]
  - Chronic obstructive pulmonary disease [Unknown]
  - Chest discomfort [Unknown]
  - Cough [Unknown]
  - Platelet count decreased [Unknown]
  - Transient ischaemic attack [Unknown]
  - Product dose omission issue [Unknown]
  - Nerve injury [Unknown]
  - Stress [Unknown]

NARRATIVE: CASE EVENT DATE: 20210224
